FAERS Safety Report 18836388 (Version 1)
Quarter: 2021Q1

REPORT INFORMATION
  Report Type: Spontaneous
  Country: US (occurrence: US)
  Receive Date: 20210203
  Receipt Date: 20210203
  Transmission Date: 20210419
  Serious: No
  Sender: FDA-Public Use
  Company Number: US-ALLERGAN-2005513US

PATIENT
  Age: 70 Year
  Sex: Female

DRUGS (2)
  1. BOTOX COSMETIC [Suspect]
     Active Substance: ONABOTULINUMTOXINA
     Indication: SKIN WRINKLING
     Dosage: UNK UNK, SINGLE
     Dates: start: 20200128, end: 20200128
  2. BOTOX COSMETIC [Suspect]
     Active Substance: ONABOTULINUMTOXINA
     Indication: SKIN WRINKLING
     Dosage: UNK UNK, SINGLE
     Dates: start: 20200128, end: 20200128

REACTIONS (7)
  - Swelling face [Recovered/Resolved]
  - Eyelid skin dryness [Recovered/Resolved]
  - Headache [Recovered/Resolved]
  - Brow ptosis [Recovered/Resolved]
  - Vision blurred [Recovered/Resolved]
  - Eyelid ptosis [Recovered/Resolved]
  - Drug ineffective [Unknown]

NARRATIVE: CASE EVENT DATE: 202001
